FAERS Safety Report 5945652-X (Version None)
Quarter: 2008Q4

REPORT INFORMATION
  Report Type: 
  Country: None (occurrence: None)
  Receive Date: 20081107
  Receipt Date: 20081024
  Transmission Date: 20090506
  Serious: Yes (Hospitalization)
  Sender: FDA-Public Use
  Company Number: FR-GENENTECH-215504

PATIENT
  Sex: Female
  Weight: 58 kg

DRUGS (6)
  1. BEVACIZUMAB [Suspect]
     Indication: COLON CANCER
     Dosage: 285 MG, Q2W
     Route: 042
     Dates: start: 20050324
  2. OXALIPLATIN [Suspect]
     Indication: COLON CANCER
     Dosage: 140 MG, Q2W
     Route: 042
     Dates: start: 20050324
  3. FLUOROURACIL [Suspect]
     Indication: COLORECTAL CANCER
     Route: 042
     Dates: start: 20050324
  4. LEUCOVORIN CALCIUM [Suspect]
     Indication: COLORECTAL CANCER
     Dosage: 340 MG, 2X/2 WEEKS
     Route: 042
     Dates: start: 20050324
  5. ACETAMINOPHEN [Concomitant]
     Indication: DRUG USE FOR UNKNOWN INDICATION
     Dates: start: 20050601, end: 20050602
  6. OMEPRAZOLE [Concomitant]
     Indication: DRUG USE FOR UNKNOWN INDICATION
     Dosage: UNK, UNK
     Dates: start: 20050524

REACTIONS (2)
  - ANXIETY [None]
  - CHEST PAIN [None]
